FAERS Safety Report 4488543-6 (Version None)
Quarter: 2004Q4

REPORT INFORMATION
  Report Type: 
  Country: None (occurrence: None)
  Receive Date: 20041028
  Receipt Date: 20041028
  Transmission Date: 20050328
  Serious: Yes (Other)
  Sender: FDA-Public Use
  Company Number: None

PATIENT
  Sex: Male

DRUGS (2)
  1. RITALIN [Suspect]
     Indication: ATTENTION DEFICIT/HYPERACTIVITY DISORDER
     Dosage: 25/25/25/PO
     Route: 048
     Dates: start: 20040821
  2. CLONIDINE [Suspect]
     Dosage: 0.1 MG 4X /DAY

REACTIONS (1)
  - DRUG INEFFECTIVE [None]
